FAERS Safety Report 13658396 (Version 11)
Quarter: 2017Q4

REPORT INFORMATION
  Report Type: Report from Study
  Country: None (occurrence: BE)
  Receive Date: 20170616
  Receipt Date: 20171127
  Transmission Date: 20180320
  Serious: Yes (Hospitalization)
  Sender: FDA-Public Use
  Company Number: BE-ABBVIE-17K-013-1999938-00

PATIENT
  Age: 54 Year
  Sex: Male

DRUGS (15)
  1. DUODOPA [Suspect]
     Active Substance: CARBIDOPA\LEVODOPA
     Indication: PARKINSON^S DISEASE
     Dosage: MD= 5 ML; CD= 2.3 ML/H DURING 16 HRS; ED= 1.5 ML
     Route: 050
     Dates: start: 20130121, end: 20130601
  2. DUODOPA [Suspect]
     Active Substance: CARBIDOPA\LEVODOPA
     Dosage: MD= 2.1 ML; CD= 2.1 ML/H DURING 16 HRS; EDA= 0.6 ML
     Route: 050
     Dates: start: 20170414, end: 2017
  3. DUODOPA [Suspect]
     Active Substance: CARBIDOPA\LEVODOPA
     Dosage: MD: 1.6ML; CD 2.1 ML/H FOR 16HRS, EDA: 0.6ML
     Route: 050
     Dates: start: 201706, end: 201706
  4. DUODOPA [Suspect]
     Active Substance: CARBIDOPA\LEVODOPA
     Dosage: MD= UNKNOWN; CD= 2.5 ML/H DURING 16 HRS; EDA= UNKNOWN
     Route: 050
     Dates: start: 201708, end: 20170821
  5. DUODOPA [Suspect]
     Active Substance: CARBIDOPA\LEVODOPA
     Dosage: MD= UNKNOWN; CD= 2.3 ML/H DURING 16 HRS; EDA= UNKNOWN
     Route: 050
     Dates: start: 20170821, end: 20170821
  6. DUODOPA [Suspect]
     Active Substance: CARBIDOPA\LEVODOPA
     Dosage: MD= 2 ML; CD= 2.1 ML/H DURING 16 HRS; EDA= 0.5 ML
     Route: 050
     Dates: start: 20170822, end: 20170825
  7. DUODOPA [Suspect]
     Active Substance: CARBIDOPA\LEVODOPA
     Dosage: AM= 1.6 ML; CD= 1.3 ML/H DURING 16 HRS; EDA= 0.6 ML
     Route: 050
     Dates: start: 20170807, end: 201708
  8. DUODOPA [Suspect]
     Active Substance: CARBIDOPA\LEVODOPA
     Dosage: MD= 2.1 ML; CD= 2.1 ML/H DURING 16 HRS; EDA= 0.6 ML
     Route: 050
     Dates: start: 20170531, end: 20170609
  9. DUODOPA [Suspect]
     Active Substance: CARBIDOPA\LEVODOPA
     Dosage: MD= UNKNOWN; CD= 2.2 ML/H DURING 16 HRS; EDA= UNKNOWN
     Route: 050
     Dates: start: 20170821, end: 20170822
  10. DUODOPA [Suspect]
     Active Substance: CARBIDOPA\LEVODOPA
     Dosage: MD=2ML, CD=2ML/HR DURING 16HRS, EDA=0.5ML
     Route: 050
     Dates: start: 20170825
  11. DUODOPA [Suspect]
     Active Substance: CARBIDOPA\LEVODOPA
     Dosage: MD= 2.1 ML; CD= 2.1 ML/H DURING 16 HRS; EDA= 0.6 ML
     Route: 050
     Dates: start: 2017, end: 20170531
  12. DUODOPA [Suspect]
     Active Substance: CARBIDOPA\LEVODOPA
     Dosage: MD: 1.6ML; CD 2.1 ML/H FOR 16HRS, EDA: 0.6ML
     Route: 050
     Dates: start: 201706, end: 20170807
  13. DUODOPA [Suspect]
     Active Substance: CARBIDOPA\LEVODOPA
     Dosage: MD= 1.6 ML; CD= 2.1 ML/H DURING 16 HRS; EDA= 0.6 ML
     Route: 050
     Dates: start: 20170609, end: 201706
  14. DUODOPA [Suspect]
     Active Substance: CARBIDOPA\LEVODOPA
     Dosage: DOSES CONTINUOUSLY MONITORED AND ADAPTED
     Route: 050
     Dates: start: 20130601, end: 20170414
  15. ASAFLOW [Concomitant]
     Active Substance: ASPIRIN
     Indication: PRODUCT USED FOR UNKNOWN INDICATION

REACTIONS (15)
  - Hospitalisation [Unknown]
  - Hyperkinesia [Unknown]
  - Device dislocation [Recovered/Resolved]
  - Stress [Unknown]
  - Chorea [Recovering/Resolving]
  - Mental disorder [Unknown]
  - Device deployment issue [Recovered/Resolved]
  - Device dislocation [Unknown]
  - Incorrect route of drug administration [Recovered/Resolved]
  - Aggression [Not Recovered/Not Resolved]
  - Confusional state [Unknown]
  - Device connection issue [Unknown]
  - Apathy [Unknown]
  - Unintentional medical device removal [Recovered/Resolved]
  - Dyskinesia [Not Recovered/Not Resolved]

NARRATIVE: CASE EVENT DATE: 201708
